FAERS Safety Report 18734647 (Version 1)
Quarter: 2021Q1

REPORT INFORMATION
  Report Type: Spontaneous
  Country: US (occurrence: US)
  Receive Date: 20210113
  Receipt Date: 20210113
  Transmission Date: 20210419
  Serious: No
  Sender: FDA-Public Use
  Company Number: US-009507513-2012USA007304

PATIENT
  Sex: Female

DRUGS (2)
  1. DICLOFENAC [Concomitant]
     Active Substance: DICLOFENAC
     Dosage: UNK
  2. JANUVIA [Suspect]
     Active Substance: SITAGLIPTIN PHOSPHATE
     Indication: DIABETES MELLITUS MANAGEMENT
     Dosage: HALF A PILL (TABLET) , AS NEEDED
     Route: 048

REACTIONS (7)
  - Blood glucose increased [Not Recovered/Not Resolved]
  - Skin disorder [Not Recovered/Not Resolved]
  - Intentional underdose [Unknown]
  - Renal disorder [Not Recovered/Not Resolved]
  - Gout [Not Recovered/Not Resolved]
  - Headache [Not Recovered/Not Resolved]
  - Wrong technique in product usage process [Unknown]

NARRATIVE: CASE EVENT DATE: 2010
